FAERS Safety Report 11815925 (Version 2)
Quarter: 2015Q4

REPORT INFORMATION
  Report Type: Other
  Country: CA (occurrence: CA)
  Receive Date: 20151209
  Receipt Date: 20151224
  Transmission Date: 20160305
  Serious: Yes (Hospitalization, Other)
  Sender: FDA-Public Use
  Company Number: CA-APOTEX-2015AP014961

PATIENT
  Age: 66 Year
  Sex: Female

DRUGS (2)
  1. APO-LOSARTAN [Suspect]
     Active Substance: LOSARTAN
     Indication: CHEST PAIN
     Route: 048
  2. LIPITOR [Concomitant]
     Active Substance: ATORVASTATIN CALCIUM
     Indication: PRODUCT USED FOR UNKNOWN INDICATION
     Route: 065

REACTIONS (2)
  - Drug ineffective for unapproved indication [Recovered/Resolved]
  - Chest pain [Recovered/Resolved]
